FAERS Safety Report 13667649 (Version 1)
Quarter: 2017Q2

REPORT INFORMATION
  Report Type: Spontaneous
  Country: CH (occurrence: CH)
  Receive Date: 20170620
  Receipt Date: 20170620
  Transmission Date: 20170830
  Serious: Yes (Death, Hospitalization)
  Sender: FDA-Public Use
  Company Number: CH-009507513-1706CHE006617

PATIENT
  Age: 67 Year
  Sex: Male

DRUGS (30)
  1. PHOSPHATE (UNSPECIFIED) [Concomitant]
     Dates: start: 20170421, end: 20170511
  2. NEORAL SANDIMMUN [Suspect]
     Active Substance: CYCLOSPORINE
     Indication: STEM CELL TRANSPLANT
     Dosage: 100 MG, BID
     Route: 048
     Dates: start: 201606, end: 20170416
  3. MABTHERA [Suspect]
     Active Substance: RITUXIMAB
     Indication: NEOPLASM PROPHYLAXIS
     Dosage: 975 MG, UNK
     Route: 041
     Dates: start: 20170205, end: 20170210
  4. CELLCEPT [Suspect]
     Active Substance: MYCOPHENOLATE MOFETIL\MYCOPHENOLATE MOFETIL HYDROCHLORIDE
     Indication: STEM CELL TRANSPLANT
     Dosage: 1000 MG, BID
     Route: 048
     Dates: start: 201606, end: 20170511
  5. PROGRAF [Suspect]
     Active Substance: TACROLIMUS\TACROLIMUS ANHYDROUS
     Indication: STEM CELL TRANSPLANT
     Dosage: 1 DF, UNK
     Route: 048
     Dates: start: 20170417, end: 20170508
  6. NEUPOGEN [Concomitant]
     Active Substance: FILGRASTIM
     Dosage: 30 MILLION IU, QD
     Dates: start: 20170510, end: 20170512
  7. ZOVIRAX [Concomitant]
     Active Substance: ACYCLOVIR
     Dosage: 500 MG, BID
     Dates: start: 20170508, end: 20170511
  8. PIPERACILLIN AND TAZOBACTAM [Concomitant]
     Active Substance: PIPERACILLIN SODIUM\TAZOBACTAM SODIUM
     Dosage: 4.5 G, BID
     Dates: start: 20170508, end: 20170513
  9. KEYTRUDA [Suspect]
     Active Substance: PEMBROLIZUMAB
     Indication: METASTATIC MALIGNANT MELANOMA
     Dosage: 180 MG, UNK
     Route: 041
     Dates: start: 20161128, end: 20170303
  10. TAXOL [Suspect]
     Active Substance: PACLITAXEL
     Indication: METASTATIC MALIGNANT MELANOMA
     Dosage: 79 MG, QW
     Route: 041
     Dates: start: 20170504, end: 20170504
  11. POLYETHYLENE GLYCOL [Concomitant]
     Active Substance: POLYETHYLENE GLYCOLS
  12. PANTOZOL [Concomitant]
     Active Substance: PANTOPRAZOLE SODIUM
     Dosage: 40 MG, QD
     Dates: end: 20170510
  13. KEYTRUDA [Suspect]
     Active Substance: PEMBROLIZUMAB
     Dosage: 90 MG, AM
     Route: 041
     Dates: start: 20170303, end: 20170303
  14. QUETIAPINE FUMARATE. [Concomitant]
     Active Substance: QUETIAPINE FUMARATE
     Dosage: 5 MG, UNK
     Dates: start: 20170511, end: 20170513
  15. NOPIL [Concomitant]
     Active Substance: SULFAMETHOXAZOLE\TRIMETHOPRIM
     Dates: end: 20170510
  16. ELTROXIN [Concomitant]
     Active Substance: LEVOTHYROXINE
     Dosage: 0.5 MG, QD
     Dates: end: 20170512
  17. CHOLECALCIFEROL [Concomitant]
     Active Substance: CHOLECALCIFEROL
  18. CALCIMAGON D3 [Concomitant]
     Active Substance: CALCIUM\CHOLECALCIFEROL
  19. MIRABEGRON [Concomitant]
     Active Substance: MIRABEGRON
     Dates: start: 20170419, end: 20170511
  20. PRADIF [Concomitant]
     Active Substance: TAMSULOSIN HYDROCHLORIDE
  21. CISPLATIN. [Suspect]
     Active Substance: CISPLATIN
     Indication: METASTATIC MALIGNANT MELANOMA
     Dosage: 214 MG, QW
     Route: 041
     Dates: start: 20070504, end: 20170504
  22. DAFALGAN ODIS [Concomitant]
     Dosage: 500 MG, QID
  23. MORPHINE [Concomitant]
     Active Substance: MORPHINE
     Dosage: UNK
     Dates: end: 20170513
  24. VALTREX [Concomitant]
     Active Substance: VALACYCLOVIR HYDROCHLORIDE
     Dosage: 500 MG, BID
     Dates: end: 20170511
  25. ZITHROMAX [Concomitant]
     Active Substance: AZITHROMYCIN DIHYDRATE
     Dosage: 500 MG, QOD
  26. FRAGMIN [Concomitant]
     Active Substance: DALTEPARIN SODIUM
  27. BULBOID [Concomitant]
  28. NOXAFIL [Concomitant]
     Active Substance: POSACONAZOLE
     Dosage: 600 MG, BID
     Dates: start: 20170428, end: 20170511
  29. PREDNISONE. [Concomitant]
     Active Substance: PREDNISONE
     Dosage: 150 MG, QD
     Dates: end: 20170512
  30. MAGNESIOCARD [Concomitant]
     Active Substance: MAGNESIUM ASPARTATE HYDROCHLORIDE

REACTIONS (7)
  - Neutropenia [Unknown]
  - Faecal vomiting [Unknown]
  - Ileus [Fatal]
  - Metastatic malignant melanoma [Fatal]
  - Condition aggravated [Fatal]
  - Graft versus host disease in lung [Fatal]
  - Proctitis [Unknown]

NARRATIVE: CASE EVENT DATE: 201611
